FAERS Safety Report 8131884-1 (Version None)
Quarter: 2012Q1

REPORT INFORMATION
  Report Type: 
  Country: None (occurrence: None)
  Receive Date: 20120213
  Receipt Date: 20120130
  Transmission Date: 20120608
  Serious: Yes (Life-Threatening)
  Sender: FDA-Public Use
  Company Number: JP-CTI_01445_2012

PATIENT
  Age: 54 Year
  Sex: Male

DRUGS (4)
  1. MEIACT MS TABLET-CEFDITOREN PIVOXIL [Suspect]
     Indication: INFECTION
     Dosage: 100 MG DAILY DOSE
     Route: 048
     Dates: start: 20120126, end: 20120126
  2. REBAMIPIDE [Concomitant]
     Indication: PRODUCT USED FOR UNKNOWN INDICATION
     Dosage: FREQUENCY UNKNOWN
     Route: 048
     Dates: start: 20120118
  3. PITAVASTATIN CALCIUM [Concomitant]
     Indication: PRODUCT USED FOR UNKNOWN INDICATION
     Dosage: DF
     Route: 048
     Dates: start: 20120118
  4. LOXOPROFEN SODIUM HYDRATE [Concomitant]
     Indication: PRODUCT USED FOR UNKNOWN INDICATION
     Route: 048
     Dates: start: 20120118

REACTIONS (6)
  - BLOOD PRESSURE DECREASED [None]
  - ANAPHYLACTIC REACTION [None]
  - RASH [None]
  - PRURITUS [None]
  - NAUSEA [None]
  - OXYGEN SATURATION DECREASED [None]
